APPROVED DRUG PRODUCT: NORTHERA
Active Ingredient: DROXIDOPA
Strength: 100MG
Dosage Form/Route: CAPSULE;ORAL
Application: N203202 | Product #001 | TE Code: AB
Applicant: LUNDBECK NA LTD
Approved: Feb 18, 2014 | RLD: Yes | RS: No | Type: RX